FAERS Safety Report 24684942 (Version 1)
Quarter: 2024Q4

REPORT INFORMATION
  Report Type: Spontaneous
  Country: US (occurrence: US)
  Receive Date: 20241202
  Receipt Date: 20241202
  Transmission Date: 20250115
  Serious: No
  Sender: JOHNSON AND JOHNSON
  Company Number: US-JNJFOC-20240844559

PATIENT
  Age: 26 Year
  Sex: Male

DRUGS (1)
  1. RISPERDAL [Suspect]
     Active Substance: RISPERIDONE
     Indication: Schizophrenia
     Dosage: IN VARYING DOSES AND FREQUENCIES OF 1 MG AND 2 MG
     Route: 048
     Dates: start: 20060324, end: 20060620

REACTIONS (2)
  - Breast enlargement [Unknown]
  - Akathisia [Unknown]

NARRATIVE: CASE EVENT DATE: 20060101
